FAERS Safety Report 13508081 (Version 1)
Quarter: 2017Q2

REPORT INFORMATION
  Report Type: Report from Study
  Country: SK (occurrence: SK)
  Receive Date: 20170503
  Receipt Date: 20170503
  Transmission Date: 20170830
  Serious: Yes (Death, Other)
  Sender: FDA-Public Use
  Company Number: SK-CELGENEUS-SVK-20170407338

PATIENT

DRUGS (1)
  1. REVLIMID [Suspect]
     Active Substance: LENALIDOMIDE
     Indication: PLASMA CELL MYELOMA
     Route: 048

REACTIONS (13)
  - Neutropenia [Fatal]
  - Fatigue [Fatal]
  - Vomiting [Fatal]
  - Nausea [Fatal]
  - Decreased appetite [Fatal]
  - Infection [Fatal]
  - Plasma cell myeloma [Unknown]
  - Anaemia [Fatal]
  - Neuropathy peripheral [Fatal]
  - Thrombocytopenia [Fatal]
  - Constipation [Fatal]
  - Diarrhoea [Fatal]
  - Embolism [Unknown]
